FAERS Safety Report 10667299 (Version 1)
Quarter: 2014Q4

REPORT INFORMATION
  Report Type: Report from Study
  Country: US (occurrence: US)
  Receive Date: 20141222
  Receipt Date: 20141222
  Transmission Date: 20150529
  Serious: Yes (Hospitalization)
  Sender: FDA-Public Use
  Company Number: PHEH2014US024891

PATIENT
  Sex: Female

DRUGS (1)
  1. CLOZARIL [Suspect]
     Active Substance: CLOZAPINE
     Indication: PRODUCT USED FOR UNKNOWN INDICATION
     Dosage: UNK
     Route: 065

REACTIONS (7)
  - Bipolar disorder [Unknown]
  - Anxiety [Unknown]
  - Schizoaffective disorder [Unknown]
  - Pain [Unknown]
  - Depression [Unknown]
  - Asthenia [Unknown]
  - Mental status changes [Unknown]
